FAERS Safety Report 17815626 (Version 2)
Quarter: 2020Q3

REPORT INFORMATION
  Report Type: Report from Study
  Country: None (occurrence: US)
  Receive Date: 20200522
  Receipt Date: 20200713
  Transmission Date: 20201102
  Serious: Yes (Hospitalization)
  Sender: FDA-Public Use
  Company Number: US-BIOVITRUM-2020US2333

PATIENT
  Sex: Female

DRUGS (1)
  1. KINERET [Suspect]
     Active Substance: ANAKINRA
     Indication: RHEUMATOID ARTHRITIS
     Route: 058
     Dates: start: 20190408

REACTIONS (5)
  - Product dose omission issue [Unknown]
  - Urticaria [Unknown]
  - Malaise [Unknown]
  - Drug ineffective [Unknown]
  - Pneumonia bacterial [Unknown]
